FAERS Safety Report 8843794 (Version 2)
Quarter: 2013Q1

REPORT INFORMATION
  Report Type: Spontaneous
  Country: US (occurrence: US)
  Receive Date: 20121016
  Receipt Date: 20130123
  Transmission Date: 20140127
  Serious: No
  Sender: FDA-Public Use
  Company Number: US-009507513-1210USA005153

PATIENT
  Age: 54 Year
  Sex: Female
  Weight: 73.47 kg

DRUGS (4)
  1. SINGULAIR [Suspect]
     Indication: RHINITIS ALLERGIC
     Dosage: 10 MG, QD
     Route: 048
     Dates: start: 20120831, end: 20120915
  2. VERAMYST [Concomitant]
     Dosage: 1 DF, QD
     Route: 045
     Dates: start: 20120831, end: 20120912
  3. ASTEPRO [Concomitant]
     Indication: RHINITIS ALLERGIC
     Dosage: 2 DF, QD
     Route: 045
     Dates: start: 20120831
  4. FLONASE [Concomitant]
     Indication: RHINITIS ALLERGIC
     Dosage: 2 DF, UNK
     Route: 045
     Dates: start: 20120928

REACTIONS (3)
  - Disorientation [Recovered/Resolved]
  - Headache [Recovered/Resolved]
  - Dizziness [Recovered/Resolved]
